FAERS Safety Report 10636649 (Version 2)
Quarter: 2014Q4

REPORT INFORMATION
  Report Type: Spontaneous
  Country: IT (occurrence: IT)
  Receive Date: 20141208
  Receipt Date: 20141229
  Transmission Date: 20150529
  Serious: Yes (Hospitalization)
  Sender: FDA-Public Use
  Company Number: IT-TEVA-525468ISR

PATIENT
  Age: 90 Year
  Sex: Female

DRUGS (6)
  1. VENITRIN 10 MG/24H [Interacting]
     Active Substance: NITROGLYCERIN
     Indication: MYOCARDIAL ISCHAEMIA
     Dosage: 10 MICROGRAM DAILY;
     Route: 062
  2. SEROQUEL [Interacting]
     Active Substance: QUETIAPINE FUMARATE
     Dosage: 25 MILLIGRAM DAILY;
     Route: 048
  3. NOVONORM 1 MG [Concomitant]
     Indication: TYPE 2 DIABETES MELLITUS
     Route: 048
  4. CARDIOASPIRIN 100 MG [Concomitant]
     Active Substance: ASPIRIN
     Indication: MYOCARDIAL ISCHAEMIA
     Route: 048
  5. RAMIPRIL. [Suspect]
     Active Substance: RAMIPRIL
     Dosage: 5 MILLIGRAM DAILY;
     Route: 048
  6. PARIET [Concomitant]
     Active Substance: RABEPRAZOLE SODIUM
     Indication: GASTRITIS
     Route: 048

REACTIONS (3)
  - Respiratory failure [Unknown]
  - Drug interaction [Unknown]
  - Lung disorder [Unknown]

NARRATIVE: CASE EVENT DATE: 20140512
